FAERS Safety Report 7602834-9 (Version None)
Quarter: 2011Q3

REPORT INFORMATION
  Report Type: 
  Country: None (occurrence: None)
  Receive Date: 20110712
  Receipt Date: 20110701
  Transmission Date: 20111222
  Serious: Yes (Hospitalization)
  Sender: FDA-Public Use
  Company Number: FR-JNJFOC-20110701501

PATIENT
  Sex: Female

DRUGS (3)
  1. CONCERTA [Suspect]
     Indication: DISTURBANCE IN ATTENTION
     Route: 048
     Dates: start: 20100201
  2. ZYPREXA [Suspect]
     Indication: MENTAL DISORDER
     Route: 048
     Dates: start: 20100128, end: 20100315
  3. ZOLPIDEM [Concomitant]
     Indication: SLEEP DISORDER
     Route: 048

REACTIONS (8)
  - CORONARY ARTERY STENOSIS [None]
  - OFF LABEL USE [None]
  - BALANCE DISORDER [None]
  - NAUSEA [None]
  - SOMNOLENCE [None]
  - GASTROINTESTINAL DISORDER [None]
  - TACHYCARDIA [None]
  - WEIGHT INCREASED [None]
